FAERS Safety Report 5765317-7 (Version None)
Quarter: 2008Q2

REPORT INFORMATION
  Report Type: 
  Country: None (occurrence: None)
  Receive Date: 20080609
  Receipt Date: 20080609
  Transmission Date: 20081010
  Serious: Yes (Hospitalization)
  Sender: FDA-Public Use
  Company Number: None

PATIENT
  Sex: Female
  Weight: 44.5 kg

DRUGS (1)
  1. TEMODAR [Suspect]
     Indication: GLIOMA
     Dosage: 210 MG  5 DAYS OF 6 WKS  PO (DAILY FOR 5 DAYS Q 6 WKS)
     Route: 048
     Dates: start: 20080410, end: 20080415

REACTIONS (6)
  - DEPRESSED LEVEL OF CONSCIOUSNESS [None]
  - DISEASE PROGRESSION [None]
  - FATIGUE [None]
  - HEADACHE [None]
  - LETHARGY [None]
  - MENTAL STATUS CHANGES [None]
